FAERS Safety Report 9239021 (Version 5)
Quarter: 2015Q1

REPORT INFORMATION
  Report Type: Spontaneous
  Country: JP (occurrence: JP)
  Receive Date: 20130418
  Receipt Date: 20150327
  Transmission Date: 20150721
  Serious: Yes (Death, Hospitalization, Other)
  Sender: FDA-Public Use
  Company Number: JP-PFIZER INC-2013090870

PATIENT
  Age: 81 Year
  Sex: Female
  Weight: 27 kg

DRUGS (8)
  1. INLYTA [Suspect]
     Active Substance: AXITINIB
     Dosage: 5 MG, UNK
     Route: 048
     Dates: start: 20121022, end: 20121129
  2. INLYTA [Suspect]
     Active Substance: AXITINIB
     Dosage: 3 MG, 2X/DAY
     Route: 048
     Dates: start: 20121204, end: 20121209
  3. INLYTA [Suspect]
     Active Substance: AXITINIB
     Dosage: 1 MG, 2X/DAY
     Route: 048
     Dates: start: 20130131, end: 20130309
  4. INLYTA [Suspect]
     Active Substance: AXITINIB
     Dosage: 2 MG, 2X/DAY
     Route: 048
     Dates: start: 20130104, end: 20130130
  5. INLYTA [Suspect]
     Active Substance: AXITINIB
     Dosage: 1 MG, 2X/DAY
     Route: 048
     Dates: start: 20130318, end: 20130409
  6. RANMARK [Suspect]
     Active Substance: DENOSUMAB
     Indication: BONE CANCER
     Dosage: 120 MG, 1X/DAY
     Route: 058
     Dates: start: 20120924, end: 20120924
  7. INLYTA [Suspect]
     Active Substance: AXITINIB
     Indication: METASTATIC RENAL CELL CARCINOMA
     Dosage: 5 MG, 2X/DAY
     Route: 048
     Dates: start: 20120924, end: 20120927
  8. INLYTA [Suspect]
     Active Substance: AXITINIB
     Dosage: 2 MG, 2X/DAY
     Route: 048
     Dates: start: 20121210, end: 20121220

REACTIONS (19)
  - Diarrhoea [Not Recovered/Not Resolved]
  - Insomnia [Not Recovered/Not Resolved]
  - Dysphonia [Recovering/Resolving]
  - Stomatitis [Not Recovered/Not Resolved]
  - Metastatic renal cell carcinoma [Fatal]
  - Hypocalcaemia [Recovering/Resolving]
  - Malaise [Not Recovered/Not Resolved]
  - Nausea [Not Recovered/Not Resolved]
  - Eczema asteatotic [Recovered/Resolved]
  - Dysphagia [Unknown]
  - Cancer pain [Not Recovered/Not Resolved]
  - Constipation [Not Recovered/Not Resolved]
  - Dysgeusia [Recovering/Resolving]
  - Gastritis [Not Recovered/Not Resolved]
  - Hypothyroidism [Not Recovered/Not Resolved]
  - Palmar-plantar erythrodysaesthesia syndrome [Recovering/Resolving]
  - Hypertension [Not Recovered/Not Resolved]
  - Disease progression [Fatal]
  - Decreased appetite [Recovered/Resolved]

NARRATIVE: CASE EVENT DATE: 201209
